FAERS Safety Report 6275471-9 (Version None)
Quarter: 2009Q3

REPORT INFORMATION
  Report Type: 
  Country: None (occurrence: None)
  Receive Date: 20090721
  Receipt Date: 20090713
  Transmission Date: 20100115
  Serious: Yes (Hospitalization)
  Sender: FDA-Public Use
  Company Number: AT-MERCK-0907AUT00005

PATIENT
  Age: 62 Year
  Sex: Female
  Weight: 100 kg

DRUGS (6)
  1. FOSAMAX [Suspect]
     Indication: OSTEOPOROSIS
     Route: 048
     Dates: start: 20090401
  2. METHOTREXATE [Concomitant]
     Indication: ARTHRITIS
     Route: 065
     Dates: start: 20090201
  3. METHOTREXATE [Concomitant]
     Indication: PSORIASIS
     Route: 065
     Dates: start: 20090201
  4. DICLOFENAC SODIUM [Concomitant]
     Indication: STOMATITIS
     Route: 048
     Dates: start: 20090616
  5. LEVOTHYROXINE SODIUM [Concomitant]
     Route: 048
     Dates: start: 19960101
  6. ENALAPRIL MALEATE [Concomitant]
     Indication: HYPERTENSION
     Route: 048

REACTIONS (4)
  - GINGIVAL BLEEDING [None]
  - MELAENA [None]
  - THROMBOCYTOPENIA [None]
  - VIRAL INFECTION [None]
